FAERS Safety Report 8238149-8 (Version None)
Quarter: 2012Q1

REPORT INFORMATION
  Report Type: 
  Country: None (occurrence: None)
  Receive Date: 20120326
  Receipt Date: 20120314
  Transmission Date: 20120608
  Serious: Yes (Other)
  Sender: FDA-Public Use
  Company Number: 2012SP014583

PATIENT
  Age: 70 Year
  Sex: Male

DRUGS (3)
  1. SUFENTANIL CITRATE [Concomitant]
  2. PROPOFOL [Concomitant]
  3. ROCURONIUM BROMIDE [Suspect]
     Indication: INDUCTION OF ANAESTHESIA

REACTIONS (6)
  - HYPOTENSION [None]
  - BRADYCARDIA [None]
  - ELECTROCARDIOGRAM QRS COMPLEX SHORTENED [None]
  - PHAEOCHROMOCYTOMA [None]
  - BLOOD PRESSURE INCREASED [None]
  - TACHYCARDIA [None]
